FAERS Safety Report 25651038 (Version 1)
Quarter: 2025Q3

REPORT INFORMATION
  Report Type: Spontaneous
  Country: US (occurrence: US)
  Receive Date: 20250806
  Receipt Date: 20250806
  Transmission Date: 20251021
  Serious: No
  Sender: CSL BEHRING
  Company Number: US-BEH-2025214594

PATIENT
  Age: 7 Year
  Sex: Female

DRUGS (2)
  1. HIZENTRA [Suspect]
     Active Substance: HUMAN IMMUNOGLOBULIN G
     Route: 065
  2. HIZENTRA [Suspect]
     Active Substance: HUMAN IMMUNOGLOBULIN G
     Route: 065

REACTIONS (6)
  - Infusion site pruritus [Unknown]
  - Infusion site urticaria [Unknown]
  - Infusion site swelling [Unknown]
  - Infusion site warmth [Unknown]
  - Erythema [Unknown]
  - Flushing [Unknown]
